FAERS Safety Report 5664330-8 (Version None)
Quarter: 2008Q1

REPORT INFORMATION
  Report Type: 
  Country: None (occurrence: None)
  Receive Date: 20080312
  Receipt Date: 20080228
  Transmission Date: 20080703
  Serious: Yes (Other)
  Sender: FDA-Public Use
  Company Number: 08-000345

PATIENT
  Sex: Male

DRUGS (1)
  1. TACLONEX [Suspect]
     Dosage: %, TOPICAL
     Route: 061
     Dates: start: 20071127

REACTIONS (1)
  - ATRIAL FIBRILLATION [None]
